FAERS Safety Report 4320568-3 (Version None)
Quarter: 2004Q1

REPORT INFORMATION
  Report Type: 
  Country: None (occurrence: None)
  Receive Date: 20040317
  Receipt Date: 20040305
  Transmission Date: 20041129
  Serious: Yes (Hospitalization, Other)
  Sender: FDA-Public Use
  Company Number: 2004015644

PATIENT
  Age: 80 Year
  Sex: Male
  Weight: 80.7403 kg

DRUGS (6)
  1. ZYRTEC [Suspect]
     Indication: SINUSITIS
     Dosage: 10 MG (DAILY), ORAL
     Route: 048
     Dates: start: 20040303
  2. GATIFLOXACIN [Suspect]
     Indication: SINUSITIS
     Dosage: ORAL
     Route: 048
     Dates: start: 20040303
  3. ESOMEPRAZOLE (ESOMEPRAZOLE) [Suspect]
     Indication: DYSPEPSIA
     Dosage: ORAL
     Route: 048
     Dates: start: 20040302
  4. ATENOLOL [Concomitant]
  5. SIMVASTATIN [Concomitant]
  6. CLOPIDOGREL BISULFATE [Concomitant]

REACTIONS (7)
  - ANOREXIA [None]
  - CEREBRAL HAEMORRHAGE [None]
  - DIZZINESS [None]
  - FALL [None]
  - FEELING ABNORMAL [None]
  - HEADACHE [None]
  - LOSS OF CONSCIOUSNESS [None]
